FAERS Safety Report 4579538-2 (Version None)
Quarter: 2005Q1

REPORT INFORMATION
  Report Type: 
  Country: None (occurrence: None)
  Receive Date: 20050214
  Receipt Date: 20050201
  Transmission Date: 20050727
  Serious: Yes (Death, Other)
  Sender: FDA-Public Use
  Company Number: NL-JNJFOC-20040305552

PATIENT
  Sex: Female

DRUGS (6)
  1. INFLIXIMAB [Suspect]
     Route: 042
  2. ETANERCEPT [Suspect]
  3. ETANERCEPT [Suspect]
  4. PREDNISONE [Suspect]
  5. METHOTREXATE [Concomitant]
  6. METHYLPREDNISOLONE [Concomitant]

REACTIONS (24)
  - ACUTE RESPIRATORY FAILURE [None]
  - ATYPICAL MYCOBACTERIAL INFECTION [None]
  - BONE TUBERCULOSIS [None]
  - CARDIAC ARREST [None]
  - CARDIOPULMONARY FAILURE [None]
  - CATHETER RELATED INFECTION [None]
  - CENTRAL VENOUS PRESSURE INCREASED [None]
  - CUTANEOUS TUBERCULOSIS [None]
  - CYST [None]
  - CYST ASPIRATION ABNORMAL [None]
  - DIFFUSE ALVEOLAR DAMAGE [None]
  - DRUG INEFFECTIVE [None]
  - ENTEROBACTER INFECTION [None]
  - ESCHERICHIA INFECTION [None]
  - JOINT TUBERCULOSIS [None]
  - LUNG INFILTRATION [None]
  - LYMPHOPENIA [None]
  - OPPORTUNISTIC INFECTION [None]
  - OXYGEN SATURATION DECREASED [None]
  - PNEUMONIA LIPOID [None]
  - POST PROCEDURAL COMPLICATION [None]
  - PULMONARY EMBOLISM [None]
  - RESPIRATORY FAILURE [None]
  - TUBERCULOSIS [None]
